FAERS Safety Report 8220732-7 (Version None)
Quarter: 2012Q1

REPORT INFORMATION
  Report Type: 
  Country: None (occurrence: None)
  Receive Date: 20120307
  Receipt Date: 20090904
  Transmission Date: 20120608
  Serious: No
  Sender: FDA-Public Use
  Company Number: PHEH2009US10501

PATIENT
  Sex: Female

DRUGS (8)
  1. CALCIUM CARBONATE [Concomitant]
  2. MAGNESIUM (MAGNESIUM) [Concomitant]
  3. LISINOPRIL [Concomitant]
  4. MULTIVITAMIN ^LAPPE^ (VITAMIN NOS) [Concomitant]
  5. SYNTHROID [Concomitant]
  6. AFINITOR [Suspect]
     Indication: RENAL CELL CARCINOMA
     Dosage: 10 MG, QD, ORAL
     Route: 048
  7. ZOLOFT (SERTRALINE) (SERTRALINE) [Concomitant]
  8. CITRACAL (CALCIUM CITRATE0 [Concomitant]

REACTIONS (4)
  - STOMATITIS [None]
  - OEDEMA PERIPHERAL [None]
  - PAIN IN EXTREMITY [None]
  - SWELLING FACE [None]
